FAERS Safety Report 5476405-7 (Version None)
Quarter: 2007Q4

REPORT INFORMATION
  Report Type: 
  Country: None (occurrence: None)
  Receive Date: 20071003
  Receipt Date: 20070924
  Transmission Date: 20080405
  Serious: Yes (Hospitalization)
  Sender: FDA-Public Use
  Company Number: GB-PFIZER INC-2007080126

PATIENT
  Age: 67 Year
  Sex: Male

DRUGS (7)
  1. VARENICLINE TABLETS [Suspect]
     Indication: SMOKING CESSATION THERAPY
  2. ADALAT CC [Concomitant]
     Dosage: DAILY DOSE:20MG
     Route: 048
  3. ARTHROTEC [Concomitant]
  4. ASPIRIN [Concomitant]
     Dosage: DAILY DOSE:75MG
     Route: 048
  5. CO-CODAMOL [Concomitant]
     Dosage: TEXT:2 DOSES
  6. OLMESARTAN MEDOXOMIL [Concomitant]
     Dosage: DAILY DOSE:20MG
     Route: 048
  7. SIMVASTATIN [Concomitant]
     Dosage: DAILY DOSE:20MG
     Route: 048

REACTIONS (3)
  - ASTHENIA [None]
  - MUSCULAR WEAKNESS [None]
  - SENSORY LOSS [None]
